FAERS Safety Report 8318947-2 (Version None)
Quarter: 2012Q2

REPORT INFORMATION
  Report Type: 
  Country: None (occurrence: None)
  Receive Date: 20120427
  Receipt Date: 20120420
  Transmission Date: 20120825
  Serious: Yes (Other)
  Sender: FDA-Public Use
  Company Number: US-JNJFOC-20120410405

PATIENT
  Sex: Male
  Weight: 92.99 kg

DRUGS (9)
  1. NUCYNTA [Suspect]
     Indication: BACK PAIN
     Dosage: TWICE DAILY
     Route: 048
     Dates: start: 20110101, end: 20120201
  2. XANAX [Concomitant]
     Indication: ANXIETY
     Route: 048
  3. HEROIN [Suspect]
     Indication: PRODUCT USED FOR UNKNOWN INDICATION
     Route: 065
  4. OXYCODONE HCL [Suspect]
     Indication: BACK PAIN
     Route: 065
     Dates: start: 20110701, end: 20120301
  5. LYRICA [Concomitant]
     Indication: NERVE INJURY
     Route: 048
     Dates: start: 20110101
  6. NUCYNTA ER [Suspect]
     Indication: BACK PAIN
     Dosage: TWICE DAILY
     Route: 048
     Dates: start: 20120201, end: 20120301
  7. GABAPENTIN [Concomitant]
     Indication: BACK PAIN
     Route: 048
     Dates: start: 20110101, end: 20110101
  8. AMITRIPTYLINE HCL [Concomitant]
     Indication: SLEEP DISORDER
     Route: 048
     Dates: start: 20090101
  9. METHADONE HCL [Suspect]
     Indication: PRODUCT USED FOR UNKNOWN INDICATION
     Route: 065

REACTIONS (2)
  - PAIN [None]
  - DRUG SCREEN POSITIVE [None]
